FAERS Safety Report 14942625 (Version 1)
Quarter: 2018Q2

REPORT INFORMATION
  Report Type: Report from Study
  Country: None (occurrence: US)
  Receive Date: 20180528
  Receipt Date: 20180528
  Transmission Date: 20180711
  Serious: Yes (Hospitalization)
  Sender: FDA-Public Use
  Company Number: US-ABBVIE-18K-163-2363690-00

PATIENT
  Age: 33 Year
  Sex: Female
  Weight: 72.64 kg

DRUGS (3)
  1. HUMIRA [Suspect]
     Active Substance: ADALIMUMAB
     Dosage: LOADING DOSE
     Route: 058
     Dates: start: 20180507, end: 20180507
  2. HUMIRA [Suspect]
     Active Substance: ADALIMUMAB
     Dosage: LOADING DOSE
     Route: 058
     Dates: start: 201805, end: 201805
  3. HUMIRA [Suspect]
     Active Substance: ADALIMUMAB
     Indication: COLITIS ULCERATIVE
     Route: 058
     Dates: end: 2013

REACTIONS (16)
  - Fluid intake reduced [Recovering/Resolving]
  - Dehydration [Recovered/Resolved]
  - Faecal calprotectin increased [Unknown]
  - Food intolerance [Recovering/Resolving]
  - Colitis ulcerative [Recovering/Resolving]
  - Haemoglobin abnormal [Unknown]
  - Incorrect dose administered [Unknown]
  - Injection site pain [Recovered/Resolved]
  - Injection site pain [Not Recovered/Not Resolved]
  - Anaemia [Recovering/Resolving]
  - Colitis [Unknown]
  - Intestinal scarring [Unknown]
  - Product contamination physical [Unknown]
  - Injection site hyperaesthesia [Unknown]
  - Faecal calprotectin increased [Not Recovered/Not Resolved]
  - Wrong technique in product usage process [Unknown]

NARRATIVE: CASE EVENT DATE: 2013
